FAERS Safety Report 6061502-8 (Version None)
Quarter: 2009Q1

REPORT INFORMATION
  Report Type: 
  Country: None (occurrence: None)
  Receive Date: 20090202
  Receipt Date: 20090121
  Transmission Date: 20090719
  Serious: Yes (Other)
  Sender: FDA-Public Use
  Company Number: JP-PFIZER INC-2009161123

PATIENT

DRUGS (3)
  1. ZYVOX [Suspect]
     Indication: STAPHYLOCOCCAL SEPSIS
  2. VANCOMYCIN HYDROCHLORIDE [Concomitant]
  3. ARBEKACIN [Concomitant]
     Route: 042

REACTIONS (1)
  - APLASIA PURE RED CELL [None]
